FAERS Safety Report 8920610 (Version 2)
Quarter: 2013Q4

REPORT INFORMATION
  Report Type: Report from Study
  Country: IT (occurrence: IT)
  Receive Date: 20121121
  Receipt Date: 20131118
  Transmission Date: 20140711
  Serious: Yes (Hospitalization)
  Sender: FDA-Public Use
  Company Number: IT-ROCHE-1153911

PATIENT
  Age: 68 Year
  Sex: Male

DRUGS (5)
  1. BEVACIZUMAB [Suspect]
     Indication: COLORECTAL CANCER METASTATIC
     Route: 042
     Dates: start: 20111116, end: 20120530
  2. CAMPTO [Concomitant]
     Indication: COLORECTAL CANCER METASTATIC
     Route: 042
     Dates: start: 20120227, end: 20120514
  3. ACIDO FOLICO [Concomitant]
     Indication: COLORECTAL CANCER METASTATIC
     Route: 042
     Dates: start: 20120227, end: 20120528
  4. FLUOROURACILE [Concomitant]
     Indication: COLORECTAL CANCER METASTATIC
     Route: 065
     Dates: start: 20120227, end: 20120528
  5. FLUOROURACILE [Concomitant]
     Route: 065
     Dates: start: 20120227, end: 20120528

REACTIONS (4)
  - Infected skin ulcer [Recovered/Resolved]
  - Impaired healing [Recovered/Resolved]
  - Fistula [Recovered/Resolved]
  - Abdominal hernia [Recovered/Resolved]
